FAERS Safety Report 4686827-X (Version None)
Quarter: 2005Q2

REPORT INFORMATION
  Report Type: 
  Country: None (occurrence: None)
  Receive Date: 20050609
  Receipt Date: 20050530
  Transmission Date: 20051028
  Serious: Yes (Death, Hospitalization)
  Sender: FDA-Public Use
  Company Number: JP-ABBOTT-05P-087-0302005-00

PATIENT
  Age: 64 Year
  Sex: Male
  Weight: 58 kg

DRUGS (12)
  1. CLARITHROMYCIN [Suspect]
     Indication: PHARYNGITIS
     Route: 048
     Dates: start: 20050409, end: 20050409
  2. LOXOPROFEN SODIUM [Suspect]
     Indication: PHARYNGITIS
     Route: 048
     Dates: start: 20050409, end: 20050410
  3. DIPYRIDAMOLE [Concomitant]
     Indication: PROTEIN URINE
     Route: 048
  4. ISOSORBIDE DINITRATE [Concomitant]
     Indication: MYOCARDIAL ISCHAEMIA
     Route: 048
  5. LOSARTAN POTASSIUM [Concomitant]
     Indication: HYPERTENSION
     Route: 048
  6. RANITIDINE HYDROCHLORIDE [Concomitant]
     Indication: GASTRITIS
     Route: 048
  7. ALLOPURINOL [Concomitant]
     Indication: HYPERURICAEMIA
     Route: 048
  8. ESTAZOLAM [Concomitant]
     Indication: DYSTHYMIC DISORDER
     Route: 048
  9. TRAZODONE HYDROCHLORIDE [Concomitant]
     Indication: DYSTHYMIC DISORDER
     Route: 048
  10. SULPIRIDE [Concomitant]
     Indication: DYSTHYMIC DISORDER
     Route: 048
  11. FLUDIAZEPAM [Concomitant]
     Indication: DYSTHYMIC DISORDER
     Route: 048
  12. INDOMETHACIN [Concomitant]
     Indication: DRUG USE FOR UNKNOWN INDICATION
     Dates: start: 20050409

REACTIONS (7)
  - ASTHENIA [None]
  - BLOOD PRESSURE DECREASED [None]
  - DEPRESSED LEVEL OF CONSCIOUSNESS [None]
  - HAEMODIALYSIS [None]
  - RENAL FAILURE ACUTE [None]
  - RHABDOMYOLYSIS [None]
  - STUPOR [None]
